FAERS Safety Report 15598320 (Version 1)
Quarter: 2018Q4

REPORT INFORMATION
  Report Type: Spontaneous
  Country: US (occurrence: US)
  Receive Date: 20181108
  Receipt Date: 20181108
  Transmission Date: 20190205
  Serious: Yes (Disabling)
  Sender: FDA-Public Use
  Company Number: None

PATIENT
  Age: 47 Year
  Sex: Female
  Weight: 64.35 kg

DRUGS (9)
  1. BIOTIN [Concomitant]
     Active Substance: BIOTIN
  2. AIMOVIG [Suspect]
     Active Substance: ERENUMAB-AOOE
     Indication: HEADACHE
     Dosage: ?          QUANTITY:1 INJECTION(S);OTHER FREQUENCY:1 TIME A MONTH;?
     Route: 030
  3. VIIBRYD [Concomitant]
     Active Substance: VILAZODONE HYDROCHLORIDE
  4. KLONOPIN [Concomitant]
     Active Substance: CLONAZEPAM
  5. CYANOCOBALAM [Concomitant]
     Active Substance: CYANOCOBALAMIN
  6. PREMARIN [Concomitant]
     Active Substance: ESTROGENS, CONJUGATED
  7. MULTIVITAMIN [Concomitant]
     Active Substance: VITAMINS
  8. TOPAMAX [Concomitant]
     Active Substance: TOPIRAMATE
  9. QUETIAPINE. [Concomitant]
     Active Substance: QUETIAPINE

REACTIONS (10)
  - Alopecia [None]
  - Pain [None]
  - Headache [None]
  - Palpitations [None]
  - Anxiety [None]
  - Constipation [None]
  - Insomnia [None]
  - Irritability [None]
  - Fatigue [None]
  - Influenza like illness [None]

NARRATIVE: CASE EVENT DATE: 20180927
